FAERS Safety Report 10313642 (Version 2)
Quarter: 2014Q3

REPORT INFORMATION
  Report Type: Spontaneous
  Country: HU (occurrence: HU)
  Receive Date: 20140718
  Receipt Date: 20140916
  Transmission Date: 20150326
  Serious: Yes (Hospitalization)
  Sender: FDA-Public Use
  Company Number: HU-ACTELION-A-CH2014-101974

PATIENT
  Age: 67 Year
  Sex: Female

DRUGS (9)
  1. TRACLEER [Suspect]
     Active Substance: BOSENTAN\BOSENTAN MONOHYDRATE
     Indication: PULMONARY ARTERIAL HYPERTENSION
     Dosage: 65.2 MG, BID
     Route: 048
     Dates: start: 20140528, end: 20140711
  2. KALIUM CHLORATUM [Concomitant]
     Active Substance: POTASSIUM CHLORIDE
     Dosage: 1 UNK, BID
  3. GLICLAZIDE [Concomitant]
     Active Substance: GLICLAZIDE
     Dosage: 60 MG, UNK
  4. BISOPROLOL [Concomitant]
     Active Substance: BISOPROLOL
     Dosage: 2.5 MG, OD
  5. SILYMARIN [Concomitant]
     Active Substance: MILK THISTLE
     Dosage: 1 TBS, UNK
  6. PANTOPRAZOLE [Concomitant]
     Active Substance: PANTOPRAZOLE SODIUM
     Dosage: 40 MG, UNK
  7. TIOTROPIUM [Concomitant]
     Active Substance: TIOTROPIUM
     Dosage: 1 UNK, OD
  8. FORMOTEROL [Concomitant]
     Active Substance: FORMOTEROL
     Dosage: 1 UNK, OD
  9. FENOFIBRAT [Concomitant]
     Active Substance: FENOFIBRATE
     Dosage: 160 MG, OD

REACTIONS (4)
  - Refusal of treatment by patient [Unknown]
  - Cholelithiasis [Unknown]
  - Pyrexia [Unknown]
  - Vomiting [Unknown]
